FAERS Safety Report 9769418 (Version 1)
Quarter: 2013Q4

REPORT INFORMATION
  Report Type: Spontaneous
  Country: US (occurrence: None)
  Receive Date: 20131217
  Receipt Date: 20131217
  Transmission Date: 20140711
  Serious: Yes (Other)
  Sender: FDA-Public Use
  Company Number: None

PATIENT
  Age: 73 Year
  Sex: Female
  Weight: 160 kg

DRUGS (1)
  1. AZITHROMYCIN ORAL 250 MG [Suspect]
     Indication: SINUSITIS
     Route: 048
     Dates: start: 20131007, end: 20131010

REACTIONS (5)
  - Eye disorder [None]
  - Vision blurred [None]
  - Eyelid ptosis [None]
  - Vision blurred [None]
  - Diplopia [None]
